APPROVED DRUG PRODUCT: HEMANGEOL
Active Ingredient: PROPRANOLOL HYDROCHLORIDE
Strength: 4.28MG/ML
Dosage Form/Route: SOLUTION;ORAL
Application: N205410 | Product #001
Applicant: PIERRE FABRE PHARMACEUTICALS INC
Approved: Mar 14, 2014 | RLD: Yes | RS: Yes | Type: RX

PATENTS:
Patent 8338489 | Expires: Oct 16, 2028
Patent 8987262 | Expires: Oct 16, 2028